FAERS Safety Report 8609251 (Version 2)
Quarter: 2012Q4

REPORT INFORMATION
  Report Type: 
  Country: US (occurrence: US)
  Receive Date: 20120611
  Receipt Date: 20120829
  Transmission Date: 20130627
  Serious: Yes (Hospitalization)
  Sender: FDA-Public Use
  Company Number: US-GILEAD-2012-0056227

PATIENT
  Age: 13 None
  Sex: Male

DRUGS (3)
  1. LETAIRIS [Suspect]
     Indication: PULMONARY ARTERIAL HYPERTENSION
     Dosage: 10 mg, UNK
     Route: 048
     Dates: start: 20100112
  2. LETAIRIS [Suspect]
     Indication: BRONCHIAL DISORDER
  3. TYVASO [Concomitant]

REACTIONS (5)
  - Sinus disorder [Unknown]
  - Cough [Unknown]
  - Throat irritation [Unknown]
  - Sinus disorder [Unknown]
  - Sinusitis [Unknown]
